FAERS Safety Report 19486947 (Version 1)
Quarter: 2021Q3

REPORT INFORMATION
  Report Type: Spontaneous
  Country: FR (occurrence: FR)
  Receive Date: 20210702
  Receipt Date: 20210702
  Transmission Date: 20211014
  Serious: Yes (Other)
  Sender: FDA-Public Use
  Company Number: FR-ORGANON-O2106FRA002412

PATIENT
  Age: 69 Year
  Sex: Female
  Weight: 54 kg

DRUGS (1)
  1. FOSAVANCE [Suspect]
     Active Substance: ALENDRONATE SODIUM\CHOLECALCIFEROL
     Indication: OSTEOPOROSIS
     Dosage: UNK; STRENGTH: 70 MG/2800 UI
     Route: 048
     Dates: start: 20120331, end: 20170331

REACTIONS (1)
  - Tooth infection [Recovered/Resolved with Sequelae]

NARRATIVE: CASE EVENT DATE: 20201125
